FAERS Safety Report 6913817-6 (Version None)
Quarter: 2010Q3

REPORT INFORMATION
  Report Type: 
  Country: None (occurrence: None)
  Receive Date: 20100809
  Receipt Date: 20100730
  Transmission Date: 20110219
  Serious: Yes (Hospitalization, Other)
  Sender: FDA-Public Use
  Company Number: JP-BAYER-200912314BYL

PATIENT
  Age: 58 Year
  Sex: Male
  Weight: 65 kg

DRUGS (6)
  1. NEXAVAR [Suspect]
     Indication: HEPATIC NEOPLASM MALIGNANT
     Dosage: TOTAL DAILY DOSE: 800 MG  UNIT DOSE: 200 MG
     Route: 048
     Dates: start: 20090623, end: 20090712
  2. NEXAVAR [Suspect]
     Dosage: TOTAL DAILY DOSE: 400 MG  UNIT DOSE: 200 MG
     Route: 048
     Dates: start: 20090713, end: 20100114
  3. NEXAVAR [Suspect]
     Dosage: UNIT DOSE: 200 MG
     Route: 048
     Dates: start: 20100129
  4. ZEFIX [Concomitant]
     Dosage: BEFORE NEXAVAR ADMINISTRATION
     Route: 048
  5. ALDACTONE [Concomitant]
     Dosage: BEFORE NEXAVAR ADMINISTRATION
     Route: 048
  6. FAMOTIDINE [Concomitant]
     Indication: PROPHYLAXIS AGAINST GASTROINTESTINAL ULCER
     Dosage: BEFORE NEXAVAR ADMINISTRATION
     Route: 048

REACTIONS (6)
  - CONSTIPATION [None]
  - DIARRHOEA [None]
  - HEPATIC ENCEPHALOPATHY [None]
  - LIPASE INCREASED [None]
  - PALMAR-PLANTAR ERYTHRODYSAESTHESIA SYNDROME [None]
  - PLATELET COUNT DECREASED [None]
